FAERS Safety Report 4984236-7 (Version None)
Quarter: 2006Q2

REPORT INFORMATION
  Report Type: 
  Country: None (occurrence: None)
  Receive Date: 20060420
  Receipt Date: 20060411
  Transmission Date: 20061013
  Serious: Yes (Hospitalization)
  Sender: FDA-Public Use
  Company Number: ZONI002312

PATIENT
  Age: 79 Year
  Sex: Male

DRUGS (2)
  1. ZONISAMIDE [Suspect]
     Indication: CONVULSION
     Dosage: 200 MG, ORAL
     Route: 048
     Dates: start: 20060108, end: 20060101
  2. UNKNOWN CONCOMITANT DRUGS [Concomitant]

REACTIONS (6)
  - DRUG HYPERSENSITIVITY [None]
  - HERPES SIMPLEX SEROLOGY POSITIVE [None]
  - LEUKAEMOID REACTION [None]
  - LIVER DISORDER [None]
  - PYREXIA [None]
  - RENAL DISORDER [None]
